FAERS Safety Report 9198138 (Version 4)
Quarter: 2013Q4

REPORT INFORMATION
  Report Type: Spontaneous
  Country: US (occurrence: US)
  Receive Date: 20130329
  Receipt Date: 20131203
  Transmission Date: 20140711
  Serious: Yes (Death, Hospitalization, Other)
  Sender: FDA-Public Use
  Company Number: US-ELI_LILLY_AND_COMPANY-US201303007772

PATIENT
  Sex: Male
  Weight: 54.42 kg

DRUGS (27)
  1. ALIMTA [Suspect]
     Indication: NON-SMALL CELL LUNG CANCER METASTATIC
     Dosage: 875 MG, OTHER
     Route: 042
     Dates: start: 20120807
  2. ALIMTA [Suspect]
     Dosage: 875 MG, OTHER
     Route: 042
     Dates: start: 20120808
  3. ALIMTA [Suspect]
     Dosage: 850 MG, OTHER
     Route: 042
     Dates: start: 20120909
  4. ALIMTA [Suspect]
     Dosage: 830 MG, OTHER
     Route: 042
     Dates: start: 20121011
  5. CISPLATIN [Concomitant]
     Indication: NON-SMALL CELL LUNG CANCER METASTATIC
     Dosage: UNK
     Dates: start: 20120807
  6. AVASTIN [Concomitant]
     Indication: NON-SMALL CELL LUNG CANCER METASTATIC
     Dosage: UNK
     Dates: start: 20120807
  7. XGEVA [Concomitant]
  8. ALOXI [Concomitant]
  9. VITAMIN B12 [Concomitant]
     Indication: SUPPLEMENTATION THERAPY
     Dosage: 1000 UG, UNKNOWN
     Route: 030
     Dates: start: 20120724
  10. FOLIC ACID [Concomitant]
     Indication: SUPPLEMENTATION THERAPY
     Dosage: 1 MG, UNKNOWN
     Route: 048
     Dates: start: 20120703
  11. FOLIC ACID [Concomitant]
     Dosage: 800 UG, UNKNOWN
     Route: 048
     Dates: start: 20120703
  12. ATIVAN [Concomitant]
     Route: 048
  13. DELTASONE                          /00044701/ [Concomitant]
     Dosage: 20 MG, QD
     Route: 048
  14. MORPHINE SULFATE [Concomitant]
     Route: 048
  15. KEPRA [Concomitant]
     Indication: CONVULSION
     Dosage: 750 MG, BID
     Route: 048
  16. SENNA                              /00142201/ [Concomitant]
     Route: 048
  17. AMBIEN [Concomitant]
     Indication: SLEEP DISORDER
     Dosage: 10 MG, EACH EVENING
     Route: 048
  18. VALTREX [Concomitant]
     Indication: HERPES ZOSTER
     Dosage: 1 G, BID
     Route: 048
  19. ZOFRAN                             /00955301/ [Concomitant]
     Indication: NAUSEA
     Dosage: 8 MG, EVERY 8 HRS
     Route: 048
  20. COMPAZINE                          /00013302/ [Concomitant]
     Indication: ANXIETY
     Dosage: 10 MG, EVERY 6 HRS
     Route: 048
  21. COMBIVENT [Concomitant]
     Indication: LUNG DISORDER
  22. PEPCID                             /00706001/ [Concomitant]
     Indication: DUODENAL ULCER
     Dosage: 20 MG, BID
     Route: 048
  23. ROBITUSSIN                         /00048001/ [Concomitant]
     Indication: COUGH
  24. BACLOFEN [Concomitant]
  25. OXYCODONE [Concomitant]
  26. PERCOCET                           /00446701/ [Concomitant]
     Dosage: UNK, PRN
  27. DILAUDID [Concomitant]
     Indication: PAIN

REACTIONS (25)
  - Malignant neoplasm progression [Fatal]
  - Headache [Unknown]
  - Nausea [Unknown]
  - Vomiting [Unknown]
  - Pericardial effusion [Unknown]
  - Cardiac tamponade [Unknown]
  - Respiratory distress [Unknown]
  - Embolism [Unknown]
  - Weight decreased [Unknown]
  - Wheezing [Unknown]
  - Deep vein thrombosis [Unknown]
  - Pulmonary embolism [Unknown]
  - Convulsion [Unknown]
  - Cerebrovascular accident [Unknown]
  - Acute respiratory failure [Unknown]
  - Chronic obstructive pulmonary disease [Unknown]
  - Mental status changes [Unknown]
  - Blood osmolarity decreased [Unknown]
  - Hyponatraemia [Unknown]
  - Decreased appetite [Unknown]
  - Fatigue [Unknown]
  - Malaise [Unknown]
  - Back pain [Unknown]
  - Pneumonia [Unknown]
  - Off label use [Unknown]
